FAERS Safety Report 10284964 (Version 2)
Quarter: 2014Q3

REPORT INFORMATION
  Report Type: Spontaneous
  Country: JP (occurrence: JP)
  Receive Date: 20140708
  Receipt Date: 20140909
  Transmission Date: 20150326
  Serious: Yes (Other)
  Sender: FDA-Public Use
  Company Number: JP-GLAXOSMITHKLINE-B1008949A

PATIENT
  Age: 42 Year
  Sex: Female

DRUGS (7)
  1. BI SIFROL [Concomitant]
     Active Substance: PRAMIPEXOLE
     Dosage: 1MG PER DAY
     Route: 048
  2. REQUIP [Suspect]
     Active Substance: ROPINIROLE HYDROCHLORIDE
     Indication: RESTLESS LEGS SYNDROME
     Dosage: 2MG TWICE PER DAY
     Route: 048
     Dates: start: 20140124
  3. PAXIL CR [Concomitant]
     Active Substance: PAROXETINE HYDROCHLORIDE
     Dosage: 25MG PER DAY
     Route: 048
  4. RIVOTRIL [Concomitant]
     Active Substance: CLONAZEPAM
     Dosage: 1MG PER DAY
     Route: 048
  5. CYMBALTA [Concomitant]
     Active Substance: DULOXETINE HYDROCHLORIDE
     Dosage: 60MG PER DAY
     Route: 048
  6. REQUIP [Suspect]
     Active Substance: ROPINIROLE HYDROCHLORIDE
     Indication: RESTLESS LEGS SYNDROME
     Dosage: 2MG PER DAY
     Route: 048
     Dates: start: 20140622
  7. ROZEREM [Concomitant]
     Active Substance: RAMELTEON
     Dosage: 8MG PER DAY
     Route: 048

REACTIONS (12)
  - Tremor [Recovered/Resolved]
  - Soliloquy [Recovered/Resolved]
  - Pallor [Recovered/Resolved]
  - Dysarthria [Recovered/Resolved]
  - Complex partial seizures [Unknown]
  - Anxiety [Recovered/Resolved]
  - Vision blurred [Unknown]
  - Altered state of consciousness [Recovered/Resolved]
  - Hypoaesthesia [Recovered/Resolved]
  - Nausea [Recovered/Resolved]
  - Restlessness [Recovered/Resolved]
  - Feeling abnormal [Unknown]

NARRATIVE: CASE EVENT DATE: 20140618
